FAERS Safety Report 26193934 (Version 1)
Quarter: 2025Q4

REPORT INFORMATION
  Report Type: Spontaneous
  Country: US (occurrence: US)
  Receive Date: 20251224
  Receipt Date: 20251224
  Transmission Date: 20260118
  Serious: Yes (Other)
  Sender: MYLAN
  Company Number: US-MYLANLABS-2025M1107741

PATIENT
  Age: 69 Year
  Sex: Male

DRUGS (20)
  1. TACROLIMUS [Interacting]
     Active Substance: TACROLIMUS
     Indication: Immunosuppressant drug therapy
     Dosage: 12 MILLIGRAM, QD (SR)
     Route: 065
     Dates: start: 202408
  2. TACROLIMUS [Interacting]
     Active Substance: TACROLIMUS
     Dosage: 12 MILLIGRAM, QD (SR)
     Dates: start: 202408
  3. TACROLIMUS [Interacting]
     Active Substance: TACROLIMUS
     Dosage: 12 MILLIGRAM, QD (SR)
     Dates: start: 202408
  4. TACROLIMUS [Interacting]
     Active Substance: TACROLIMUS
     Dosage: 12 MILLIGRAM, QD (SR)
     Route: 065
     Dates: start: 202408
  5. TACROLIMUS [Interacting]
     Active Substance: TACROLIMUS
     Dosage: 10 MILLIGRAM, QD
     Route: 065
     Dates: start: 20240829
  6. TACROLIMUS [Interacting]
     Active Substance: TACROLIMUS
     Dosage: 10 MILLIGRAM, QD
     Route: 065
     Dates: start: 20240829
  7. TACROLIMUS [Interacting]
     Active Substance: TACROLIMUS
     Dosage: 10 MILLIGRAM, QD
     Dates: start: 20240829
  8. TACROLIMUS [Interacting]
     Active Substance: TACROLIMUS
     Dosage: 10 MILLIGRAM, QD
     Dates: start: 20240829
  9. TACROLIMUS [Interacting]
     Active Substance: TACROLIMUS
     Dosage: 8 MILLIGRAM, QD
     Route: 065
     Dates: start: 20240912
  10. TACROLIMUS [Interacting]
     Active Substance: TACROLIMUS
     Dosage: 8 MILLIGRAM, QD
     Route: 065
     Dates: start: 20240912
  11. TACROLIMUS [Interacting]
     Active Substance: TACROLIMUS
     Dosage: 8 MILLIGRAM, QD
     Dates: start: 20240912
  12. TACROLIMUS [Interacting]
     Active Substance: TACROLIMUS
     Dosage: 8 MILLIGRAM, QD
     Dates: start: 20240912
  13. TACROLIMUS [Interacting]
     Active Substance: TACROLIMUS
     Dosage: 6 MILLIGRAM, QD
     Route: 065
     Dates: start: 20241014
  14. TACROLIMUS [Interacting]
     Active Substance: TACROLIMUS
     Dosage: 6 MILLIGRAM, QD
     Dates: start: 20241014
  15. TACROLIMUS [Interacting]
     Active Substance: TACROLIMUS
     Dosage: 6 MILLIGRAM, QD
     Dates: start: 20241014
  16. TACROLIMUS [Interacting]
     Active Substance: TACROLIMUS
     Dosage: 6 MILLIGRAM, QD
     Route: 065
     Dates: start: 20241014
  17. VALERIAN [Interacting]
     Active Substance: VALERIAN
     Indication: Insomnia
     Dosage: 1 GRAM, QD, VALERIAN ROOT SUPPLEMENT (VRS)
     Dates: start: 202406, end: 2024
  18. VALERIAN [Interacting]
     Active Substance: VALERIAN
     Indication: Anxiety
     Dosage: 1 GRAM, QD, VALERIAN ROOT SUPPLEMENT (VRS)
     Route: 065
     Dates: start: 202406, end: 2024
  19. VALERIAN [Interacting]
     Active Substance: VALERIAN
     Dosage: 1 GRAM, QD, VALERIAN ROOT SUPPLEMENT (VRS)
     Route: 065
     Dates: start: 202406, end: 2024
  20. VALERIAN [Interacting]
     Active Substance: VALERIAN
     Dosage: 1 GRAM, QD, VALERIAN ROOT SUPPLEMENT (VRS)
     Dates: start: 202406, end: 2024

REACTIONS (3)
  - Toxicity to various agents [Recovered/Resolved]
  - Herbal interaction [Recovered/Resolved]
  - Drug interaction [Recovered/Resolved]

NARRATIVE: CASE EVENT DATE: 20240820
